FAERS Safety Report 20494220 (Version 1)
Quarter: 2022Q1

REPORT INFORMATION
  Report Type: Spontaneous
  Country: FR (occurrence: FR)
  Receive Date: 20220221
  Receipt Date: 20220221
  Transmission Date: 20220423
  Serious: Yes (Disabling)
  Sender: FDA-Public Use
  Company Number: FR-ABBVIE-22K-056-4283363-00

PATIENT
  Age: 2 Year
  Sex: Female
  Weight: 15 kg

DRUGS (4)
  1. VALPROATE SODIUM [Suspect]
     Active Substance: VALPROATE SODIUM
     Indication: Febrile convulsion
     Dosage: UNKNOWN
     Route: 048
     Dates: start: 198811, end: 199006
  2. PHENOBARBITAL [Suspect]
     Active Substance: PHENOBARBITAL
     Indication: Febrile convulsion
     Dosage: UNKNOWN
     Route: 048
     Dates: start: 198803, end: 198811
  3. DIAZEPAM [Suspect]
     Active Substance: DIAZEPAM
     Indication: Febrile convulsion
     Route: 054
     Dates: start: 198712, end: 1993
  4. CAFFEINE\PHENOBARBITAL [Suspect]
     Active Substance: CAFFEINE\PHENOBARBITAL
     Indication: Febrile convulsion
     Route: 048
     Dates: start: 199006, end: 199010

REACTIONS (1)
  - Neurodevelopmental disorder [Recovered/Resolved with Sequelae]

NARRATIVE: CASE EVENT DATE: 19900101
